FAERS Safety Report 5525236-8 (Version None)
Quarter: 2007Q4

REPORT INFORMATION
  Report Type: 
  Country: None (occurrence: None)
  Receive Date: 20071126
  Receipt Date: 20071115
  Transmission Date: 20080405
  Serious: Yes (Other)
  Sender: FDA-Public Use
  Company Number: US-ROCHE-531922

PATIENT
  Age: 11 Year
  Sex: Male
  Weight: 39.5 kg

DRUGS (2)
  1. CELLCEPT [Suspect]
     Route: 065
     Dates: start: 19980101, end: 19980101
  2. CELLCEPT [Suspect]
     Route: 065
     Dates: start: 20070818, end: 20071015

REACTIONS (3)
  - DRUG INTOLERANCE [None]
  - GASTROINTESTINAL PROTOZOAL INFECTION [None]
  - WEIGHT DECREASED [None]
